FAERS Safety Report 5284356-6 (Version None)
Quarter: 2007Q2

REPORT INFORMATION
  Report Type: 
  Country: None (occurrence: None)
  Receive Date: 20070403
  Receipt Date: 20070320
  Transmission Date: 20071010
  Serious: Yes (Death)
  Sender: FDA-Public Use
  Company Number: US-KINGPHARMUSA00001-K200700347

PATIENT

DRUGS (5)
  1. AVINZA [Suspect]
     Indication: POSTOPERATIVE ANALGESIA
     Dosage: 30 MG, PRN
     Route: 048
     Dates: start: 20070301
  2. SKELAXIN [Concomitant]
     Dosage: UNK, UNK
     Route: 048
     Dates: start: 20070301
  3. LUNESTA [Concomitant]
     Indication: POSTOPERATIVE ANALGESIA
     Route: 048
     Dates: start: 20070301
  4. LEVAQUIN [Concomitant]
     Indication: ANTIBIOTIC PROPHYLAXIS
     Route: 048
     Dates: start: 20070301
  5. PHENERGAN   /00033001/ [Concomitant]
     Indication: PROCEDURAL NAUSEA
     Route: 048
     Dates: start: 20070301

REACTIONS (2)
  - ACCIDENTAL OVERDOSE [None]
  - DEATH [None]
